FAERS Safety Report 7159812-6 (Version None)
Quarter: 2010Q4

REPORT INFORMATION
  Report Type: 
  Country: None (occurrence: None)
  Receive Date: 20101214
  Receipt Date: 20101008
  Transmission Date: 20110411
  Serious: No
  Sender: FDA-Public Use
  Company Number: US-ASTRAZENECA-2010SE47732

PATIENT
  Age: 56 Year
  Sex: Male
  Weight: 77.1 kg

DRUGS (12)
  1. CRESTOR [Suspect]
     Route: 048
     Dates: start: 20070101
  2. PLAVIX [Concomitant]
  3. LISINOPRIL [Concomitant]
  4. ASPIRIN [Concomitant]
  5. COREG [Concomitant]
  6. RENAL CAPS [Concomitant]
  7. MAGNESIUM OXIDE [Concomitant]
  8. IRON [Concomitant]
  9. ZANTAC [Concomitant]
  10. NORCO [Concomitant]
  11. STATINS [Concomitant]
  12. NIASPAN [Concomitant]

REACTIONS (4)
  - ASTHENIA [None]
  - MUSCLE ATROPHY [None]
  - MUSCLE DISORDER [None]
  - MYALGIA [None]
